FAERS Safety Report 7000884-7 (Version None)
Quarter: 2010Q3

REPORT INFORMATION
  Report Type: 
  Country: None (occurrence: None)
  Receive Date: 20100920
  Receipt Date: 20100910
  Transmission Date: 20110219
  Serious: Yes (Death, Other)
  Sender: FDA-Public Use
  Company Number: IT-GENZYME-CLOF-1001037

PATIENT
  Sex: Female
  Weight: 60 kg

DRUGS (8)
  1. EVOLTRA [Suspect]
     Indication: ACUTE MYELOID LEUKAEMIA
     Dosage: 22.5 MG/M2, QDX5
     Route: 042
     Dates: start: 20090513, end: 20090517
  2. CYTARABINE [Suspect]
     Indication: ACUTE MYELOID LEUKAEMIA
     Dosage: 1 G/M2, QDX5
     Route: 042
     Dates: start: 20090513, end: 20090517
  3. MYLOTARG [Suspect]
     Indication: ACUTE MYELOID LEUKAEMIA
     Dosage: 6 MG/M2, ONCE
     Route: 042
     Dates: start: 20090518, end: 20090518
  4. LEVOFLOXACIN [Concomitant]
     Indication: PROPHYLAXIS
     Dosage: 500 MG, QD
     Route: 048
     Dates: start: 20090513, end: 20090521
  5. ITRACONAZOLE [Concomitant]
     Indication: PROPHYLAXIS
     Dosage: 400 MG, QD
     Route: 048
     Dates: start: 20090513, end: 20090523
  6. ALLOPURINOL [Concomitant]
     Indication: PROPHYLAXIS
     Dosage: 30 MG, QD
     Route: 048
     Dates: start: 20090513, end: 20090523
  7. AMITRIPTYLINE HCL [Concomitant]
     Indication: PROPHYLAXIS
     Dosage: 4 GTT, QD
     Route: 048
     Dates: start: 20090509, end: 20090523
  8. HALCION [Concomitant]
     Indication: PROPHYLAXIS
     Dosage: 0.125 MG, QD
     Route: 048
     Dates: start: 20090509, end: 20090523

REACTIONS (2)
  - BONE MARROW FAILURE [None]
  - SEPTIC SHOCK [None]
